FAERS Safety Report 7491752-5 (Version None)
Quarter: 2011Q2

REPORT INFORMATION
  Report Type: 
  Country: None (occurrence: None)
  Receive Date: 20110512
  Receipt Date: 20110427
  Transmission Date: 20111010
  Serious: Yes (Hospitalization, Other)
  Sender: FDA-Public Use
  Company Number: 028662

PATIENT
  Sex: Male
  Weight: 78.9259 kg

DRUGS (14)
  1. LOPERAMIDE [Concomitant]
  2. MESALAMINE [Concomitant]
  3. MERCAPTOPURINE [Concomitant]
  4. ZOLOFT [Concomitant]
  5. CIMZIA [Suspect]
     Indication: CROHN'S DISEASE
     Dosage: SEE IMAGE
     Route: 058
     Dates: start: 20100514
  6. CIMZIA [Suspect]
     Indication: CROHN'S DISEASE
     Dosage: SEE IMAGE
     Route: 058
     Dates: start: 20100618
  7. CIMZIA [Suspect]
     Indication: CROHN'S DISEASE
     Dosage: SEE IMAGE
     Route: 058
     Dates: start: 20091210
  8. CIMZIA [Suspect]
     Indication: CROHN'S DISEASE
     Dosage: SEE IMAGE
     Route: 058
     Dates: start: 20100110
  9. CIMZIA [Suspect]
     Indication: CROHN'S DISEASE
     Dosage: SEE IMAGE
     Route: 058
     Dates: start: 20090905
  10. CIMZIA [Suspect]
     Indication: CROHN'S DISEASE
     Dosage: SEE IMAGE
     Route: 058
     Dates: start: 20100413
  11. CIMZIA [Suspect]
     Indication: CROHN'S DISEASE
     Dosage: SEE IMAGE
     Route: 058
     Dates: start: 20100723
  12. PERCOCET [Concomitant]
  13. INFLIXIMAB [Concomitant]
  14. OXYCODONE HCL [Concomitant]

REACTIONS (10)
  - PYREXIA [None]
  - BLOOD ALBUMIN DECREASED [None]
  - COLITIS [None]
  - HAEMOGLOBIN DECREASED [None]
  - HAEMATOCRIT DECREASED [None]
  - ABDOMINAL PAIN LOWER [None]
  - NAUSEA [None]
  - DISCOMFORT [None]
  - BLOOD POTASSIUM DECREASED [None]
  - DIARRHOEA [None]
